FAERS Safety Report 7064077-X (Version None)
Quarter: 2010Q4

REPORT INFORMATION
  Report Type: 
  Country: None (occurrence: None)
  Receive Date: 20101027
  Receipt Date: 20101022
  Transmission Date: 20110411
  Serious: Yes (Other)
  Sender: FDA-Public Use
  Company Number: GB-SHIRE-SPV1-2010-01833

PATIENT
  Sex: Male

DRUGS (1)
  1. MEZAVANT XL [Suspect]
     Indication: INFLAMMATORY BOWEL DISEASE
     Dosage: UNK, UNKNOWN

REACTIONS (1)
  - MYOCARDIAL INFARCTION [None]
